FAERS Safety Report 8475399-X (Version None)
Quarter: 2012Q2

REPORT INFORMATION
  Report Type: 
  Country: None (occurrence: None)
  Receive Date: 20120628
  Receipt Date: 20120622
  Transmission Date: 20120825
  Serious: Yes (Hospitalization)
  Sender: FDA-Public Use
  Company Number: US-CELGENEUS-163-21880-12063317

PATIENT
  Sex: Female

DRUGS (10)
  1. ALENDRONATE SODIUM [Concomitant]
     Route: 065
  2. CLOPIDOGREL [Concomitant]
     Route: 065
  3. MULTI-VITAMINS [Concomitant]
     Route: 065
  4. TOPROL-XL [Concomitant]
     Route: 065
  5. KLOR-CON [Concomitant]
     Route: 065
  6. LISINOPRIL [Concomitant]
     Route: 065
  7. REVLIMID [Suspect]
     Indication: MULTIPLE MYELOMA
     Dosage: 5 MILLIGRAM
     Route: 048
     Dates: start: 20120501
  8. BETHANECHOL [Concomitant]
     Route: 065
  9. CALCIUM [Concomitant]
     Route: 065
  10. FUROSEMIDE [Concomitant]
     Route: 065

REACTIONS (1)
  - LOWER LIMB FRACTURE [None]
